FAERS Safety Report 7417700-1 (Version None)
Quarter: 2011Q2

REPORT INFORMATION
  Report Type: 
  Country: None (occurrence: None)
  Receive Date: 20110415
  Receipt Date: 20110413
  Transmission Date: 20111010
  Serious: Yes (Hospitalization)
  Sender: FDA-Public Use
  Company Number: CH-ABBOTT-11P-151-0701250-00

PATIENT
  Age: 69 Year
  Sex: Female

DRUGS (11)
  1. SEROQUEL XR [Suspect]
     Route: 048
     Dates: start: 20101202
  2. SEROQUEL XR [Suspect]
     Route: 048
     Dates: start: 20101210, end: 20101227
  3. CHONDROSULF [Concomitant]
     Indication: PRODUCT USED FOR UNKNOWN INDICATION
     Route: 065
  4. ATACAND [Suspect]
     Indication: PRODUCT USED FOR UNKNOWN INDICATION
     Dosage: 16/12.5MG
     Route: 048
     Dates: start: 20100917, end: 20110104
  5. VALPROIC ACID [Suspect]
     Dosage: 200-300MG
     Route: 048
     Dates: start: 20101210
  6. VALPROIC ACID [Suspect]
     Indication: PRODUCT USED FOR UNKNOWN INDICATION
     Dosage: 200-300MG
     Route: 048
     Dates: start: 20101203, end: 20101209
  7. SEROQUEL XR [Suspect]
     Route: 048
     Dates: start: 20101228
  8. SEROQUEL XR [Suspect]
     Indication: BIPOLAR I DISORDER
     Dosage: 100-150MG DAILY
     Route: 048
     Dates: start: 20100315, end: 20101201
  9. SEROQUEL XR [Suspect]
     Route: 048
     Dates: start: 20101202, end: 20101209
  10. IBEROGAST [Concomitant]
     Indication: PRODUCT USED FOR UNKNOWN INDICATION
     Route: 065
  11. NOVALGIN [Concomitant]
     Indication: PRODUCT USED FOR UNKNOWN INDICATION
     Route: 065

REACTIONS (4)
  - HYPONATRAEMIA [None]
  - DISORIENTATION [None]
  - CONFUSIONAL STATE [None]
  - TREATMENT NONCOMPLIANCE [None]
